FAERS Safety Report 4991182-1 (Version None)
Quarter: 2006Q2

REPORT INFORMATION
  Report Type: 
  Country: None (occurrence: None)
  Receive Date: 20060427
  Receipt Date: 20060329
  Transmission Date: 20061013
  Serious: Yes (Hospitalization)
  Sender: FDA-Public Use
  Company Number: 2006053786

PATIENT
  Age: 72 Year
  Sex: Female
  Weight: 31 kg

DRUGS (3)
  1. IRINOTECAN HCL [Suspect]
     Indication: PANCREATIC CARCINOMA
     Dosage: 80 MG/M*2 (ONE DAY), INTRAVENOUS
     Route: 042
     Dates: start: 20050830, end: 20050830
  2. IRINOTECAN HCL [Suspect]
     Indication: PANCREATIC CARCINOMA
     Dosage: 80 MG/M*2 (ONE DAY), INTRAVENOUS
     Route: 042
     Dates: start: 20050906, end: 20050906
  3. IRINOTECAN HCL [Suspect]
     Indication: PANCREATIC CARCINOMA
     Dosage: 80 MG/M*2 (ONE DAY), INTRAVENOUS
     Route: 042
     Dates: start: 20051212, end: 20051212

REACTIONS (1)
  - HEPATIC STEATOSIS [None]
